FAERS Safety Report 14308139 (Version 3)
Quarter: 2018Q1

REPORT INFORMATION
  Report Type: Report from Study
  Country: None (occurrence: US)
  Receive Date: 20171220
  Receipt Date: 20180326
  Transmission Date: 20180509
  Serious: Yes (Hospitalization, Other)
  Sender: FDA-Public Use
  Company Number: US-ABBVIE-17K-163-2185184-00

PATIENT
  Age: 52 Year
  Sex: Female

DRUGS (2)
  1. HUMIRA [Suspect]
     Active Substance: ADALIMUMAB
     Indication: PSORIATIC ARTHROPATHY
     Route: 058
     Dates: start: 2013
  2. HUMIRA [Suspect]
     Active Substance: ADALIMUMAB
     Route: 058

REACTIONS (6)
  - Tooth infection [Unknown]
  - Colitis ulcerative [Recovered/Resolved]
  - Appendicectomy [Recovered/Resolved]
  - Tooth infection [Unknown]
  - Back pain [Not Recovered/Not Resolved]
  - Psoriasis [Unknown]

NARRATIVE: CASE EVENT DATE: 2016
